FAERS Safety Report 5918464-0 (Version None)
Quarter: 2008Q4

REPORT INFORMATION
  Report Type: 
  Country: None (occurrence: None)
  Receive Date: 20081015
  Receipt Date: 20081006
  Transmission Date: 20090506
  Serious: Yes (Other)
  Sender: FDA-Public Use
  Company Number: US-JNJFOC-20081001370

PATIENT
  Sex: Female
  Weight: 57.15 kg

DRUGS (6)
  1. REMICADE [Suspect]
     Route: 042
  2. REMICADE [Suspect]
     Indication: RHEUMATOID ARTHRITIS
     Route: 042
  3. METHOTREXATE [Concomitant]
  4. FOLIC ACID [Concomitant]
  5. M.V.I. [Concomitant]
  6. ASCORBIC ACID [Concomitant]

REACTIONS (3)
  - DIZZINESS [None]
  - INFUSION RELATED REACTION [None]
  - MACULAR DEGENERATION [None]
